FAERS Safety Report 25944275 (Version 2)
Quarter: 2025Q4

REPORT INFORMATION
  Report Type: Spontaneous
  Country: US (occurrence: US)
  Receive Date: 20251021
  Receipt Date: 20251117
  Transmission Date: 20260117
  Serious: Yes (Other)
  Sender: SANOFI AVENTIS
  Company Number: US-SA-2025SA311039

PATIENT
  Age: 87 Year
  Sex: Male
  Weight: 72.73 kg

DRUGS (22)
  1. DUPIXENT [Suspect]
     Active Substance: DUPILUMAB
     Indication: Dermatitis atopic
     Dosage: 600 MG, 1X
     Route: 058
     Dates: start: 202509, end: 202509
  2. DUPIXENT [Suspect]
     Active Substance: DUPILUMAB
     Dosage: 300 MG, QOW
     Route: 058
     Dates: start: 2025
  3. DILTIAZEM [Suspect]
     Active Substance: DILTIAZEM
  4. BETAMETHASONE VALERATE [Concomitant]
     Active Substance: BETAMETHASONE VALERATE
  5. HALOBETASOL PROPIONATE [Concomitant]
     Active Substance: HALOBETASOL PROPIONATE
  6. ELIQUIS [Concomitant]
     Active Substance: APIXABAN
  7. VALACYCLOVIR [Concomitant]
     Active Substance: VALACYCLOVIR HYDROCHLORIDE
  8. SYSTANE (HYPROMELLOSE 2910 (4000 MPA.S)) [Concomitant]
     Active Substance: HYPROMELLOSE 2910 (4000 MPA.S)
  9. MINERALS\VITAMINS [Concomitant]
     Active Substance: MINERALS\VITAMINS
  10. VITAMIN D [Concomitant]
     Active Substance: VITAMIN D NOS
  11. CLONAZEPAM [Concomitant]
     Active Substance: CLONAZEPAM
  12. PRAVASTATIN SODIUM [Concomitant]
     Active Substance: PRAVASTATIN SODIUM
  13. TAMSULOSIN HYDROCHLORIDE [Concomitant]
     Active Substance: TAMSULOSIN HYDROCHLORIDE
  14. STIOLTO RESPIMAT [Concomitant]
     Active Substance: OLODATEROL HYDROCHLORIDE\TIOTROPIUM BROMIDE MONOHYDRATE
  15. CARDIZEM LA [Concomitant]
     Active Substance: DILTIAZEM HYDROCHLORIDE
  16. COZAAR [Concomitant]
     Active Substance: LOSARTAN POTASSIUM
  17. PEPCID [Concomitant]
     Active Substance: FAMOTIDINE
  18. TACROLIMUS [Concomitant]
     Active Substance: TACROLIMUS
  19. COSMETICS [Concomitant]
     Active Substance: COSMETICS
  20. FLUOCINOLONE ACETONIDE [Concomitant]
     Active Substance: FLUOCINOLONE ACETONIDE
  21. MODERNA COVID-19 VACCINE [Concomitant]
     Active Substance: ELASOMERAN
  22. PREDNISONE [Concomitant]
     Active Substance: PREDNISONE

REACTIONS (6)
  - Atrial fibrillation [Unknown]
  - Sleep disorder due to a general medical condition [Unknown]
  - Pruritus [Unknown]
  - Rash erythematous [Unknown]
  - Skin atrophy [Unknown]
  - Rash [Unknown]

NARRATIVE: CASE EVENT DATE: 20250101
